FAERS Safety Report 7235694-9 (Version None)
Quarter: 2011Q1

REPORT INFORMATION
  Report Type: 
  Country: None (occurrence: None)
  Receive Date: 20110120
  Receipt Date: 20110113
  Transmission Date: 20110831
  Serious: Yes (Other)
  Sender: FDA-Public Use
  Company Number: US-ASTRAZENECA-2007UW09482

PATIENT
  Age: 556 Month
  Sex: Female
  Weight: 70.8 kg

DRUGS (19)
  1. SEROQUEL [Suspect]
     Indication: PARANOIA
     Dosage: 100 MG TO 300 MG
     Route: 048
     Dates: start: 20010413
  2. SEROQUEL [Suspect]
     Dosage: 200 TO 300 MG
     Route: 048
     Dates: start: 20030114
  3. GEODON [Concomitant]
     Dates: start: 20040818, end: 20041020
  4. GEODON [Concomitant]
     Dates: start: 20050912, end: 20051011
  5. XANAX [Concomitant]
     Indication: ANXIETY
  6. TRAZODONE [Concomitant]
     Dosage: 75 TO 150 MG
     Dates: start: 20040101
  7. SEROQUEL [Suspect]
     Dosage: 200 TO 300 MG
     Route: 048
     Dates: start: 20030114
  8. PROZAC [Concomitant]
     Indication: ANXIETY
     Route: 048
     Dates: start: 20010413
  9. TOPAMAX [Concomitant]
     Indication: AFFECTIVE DISORDER
     Dates: start: 20010413
  10. SEROQUEL [Suspect]
     Indication: BIPOLAR I DISORDER
     Dosage: 100 MG TO 300 MG
     Route: 048
     Dates: start: 20010413
  11. SEROQUEL [Suspect]
     Indication: SLEEP DISORDER
     Dosage: 100 MG TO 300 MG
     Route: 048
     Dates: start: 20010413
  12. GEODON [Concomitant]
     Dates: start: 20050816
  13. CELEXA [Concomitant]
     Dates: start: 20040101
  14. SEROQUEL [Suspect]
     Dosage: 200 TO 300 MG
     Route: 048
     Dates: start: 20030114
  15. TOPAMAX [Concomitant]
     Indication: OVERWEIGHT
     Dates: start: 20010413
  16. RISPERDAL [Concomitant]
     Dates: start: 20000401
  17. ZYPREXA [Concomitant]
     Dates: start: 20000501
  18. PROZAC [Concomitant]
     Indication: ELEVATED MOOD
     Route: 048
     Dates: start: 20010413
  19. GEMFIBROZIL [Concomitant]
     Indication: BLOOD CHOLESTEROL
     Dates: start: 20060420

REACTIONS (7)
  - MYOCARDIAL INFARCTION [None]
  - TYPE 2 DIABETES MELLITUS [None]
  - BLOOD CHOLESTEROL INCREASED [None]
  - HYPERTRIGLYCERIDAEMIA [None]
  - LIVER INJURY [None]
  - DIABETES MELLITUS INADEQUATE CONTROL [None]
  - RENAL DISORDER [None]
